FAERS Safety Report 8008726-8 (Version None)
Quarter: 2011Q4

REPORT INFORMATION
  Report Type: 
  Country: None (occurrence: None)
  Receive Date: 20111227
  Receipt Date: 20111212
  Transmission Date: 20120403
  Serious: Yes (Death, Other)
  Sender: FDA-Public Use
  Company Number: FR-ROCHE-767972

PATIENT

DRUGS (13)
  1. IFOSFAMIDE [Suspect]
     Indication: DIFFUSE LARGE B-CELL LYMPHOMA
     Dosage: 1500 MG/M1 ON DAY 1 AND 2
     Route: 065
  2. PREDNISONE TAB [Suspect]
     Indication: DIFFUSE LARGE B-CELL LYMPHOMA
     Dosage: FROM DAY TO DAY 5
     Route: 065
  3. ETOPOSIDE [Suspect]
     Indication: DIFFUSE LARGE B-CELL LYMPHOMA
     Dosage: ON DAY 1 AND 2
     Route: 065
  4. CYTARABINE [Suspect]
     Indication: DIFFUSE LARGE B-CELL LYMPHOMA
     Dosage: FOR 4 DAYS ON EACH CONSOLIDATION COURSE GIVEN AT 14 DAYS INTERVAL
     Route: 058
  5. BLEOMYCIN SULFATE [Suspect]
     Indication: DIFFUSE LARGE B-CELL LYMPHOMA
     Dosage: ON DAY 1 AND 5
     Route: 065
  6. METHOTREXATE [Suspect]
     Indication: DIFFUSE LARGE B-CELL LYMPHOMA
     Dosage: ON DAY 2
     Route: 037
  7. DOXORUBICIN HCL [Suspect]
     Indication: DIFFUSE LARGE B-CELL LYMPHOMA
     Dosage: ON DAY 1
     Route: 065
  8. LEUCOVORIN CALCIUM [Suspect]
     Indication: DIFFUSE LARGE B-CELL LYMPHOMA
     Route: 065
  9. NEUPOGEN [Concomitant]
     Dosage: FROM DAY 6 TO 13
  10. VINDESINE [Suspect]
     Indication: DIFFUSE LARGE B-CELL LYMPHOMA
     Dosage: ON DAY 1 AND 5
     Route: 065
  11. MABTHERA [Suspect]
     Indication: DIFFUSE LARGE B-CELL LYMPHOMA
     Dosage: ON DAY 1
     Route: 065
  12. CYCLOPHOSPHAMIDE [Suspect]
     Indication: DIFFUSE LARGE B-CELL LYMPHOMA
     Dosage: ON DAY 1
     Route: 065
  13. METHOTREXATE [Suspect]
     Dosage: CONSOLIDATION THERAPY 2 COURSES OF METHOTREXATE: 3 G/M2
     Route: 037

REACTIONS (20)
  - ANAEMIA [None]
  - DIARRHOEA [None]
  - ALANINE AMINOTRANSFERASE INCREASED [None]
  - PULMONARY TOXICITY [None]
  - CARDIOTOXICITY [None]
  - HAEMATOTOXICITY [None]
  - SEPSIS [None]
  - FEBRILE NEUTROPENIA [None]
  - NEUTROPENIA [None]
  - THROMBOCYTOPENIA [None]
  - INFECTION [None]
  - VOMITING [None]
  - DEATH [None]
  - NAUSEA [None]
  - BLOOD CREATININE INCREASED [None]
  - ANGIOPATHY [None]
  - NEUTROPENIC INFECTION [None]
  - MUCOSAL INFLAMMATION [None]
  - RASH [None]
  - NEUROTOXICITY [None]
